FAERS Safety Report 16371545 (Version 2)
Quarter: 2019Q2

REPORT INFORMATION
  Report Type: Spontaneous
  Country: US (occurrence: US)
  Receive Date: 20190530
  Receipt Date: 20190531
  Transmission Date: 20190711
  Serious: No
  Sender: FDA-Public Use
  Company Number: US-PFIZER INC-2019225298

PATIENT
  Age: 17 Month
  Sex: Male
  Weight: 11 kg

DRUGS (2)
  1. EUCRISA [Suspect]
     Active Substance: CRISABOROLE
     Indication: RASH
  2. EUCRISA [Suspect]
     Active Substance: CRISABOROLE
     Indication: ECZEMA
     Dosage: UNK (SMALL AMOUNT APPLIED TO LEG, DIAPER LINE, BACK OF HIS KNEES, AND ANKLES)
     Dates: start: 20190523

REACTIONS (6)
  - Off label use [Unknown]
  - Irritability [Unknown]
  - Product use issue [Unknown]
  - Vomiting [Unknown]
  - Nausea [Unknown]
  - Somnolence [Unknown]

NARRATIVE: CASE EVENT DATE: 20190523
